FAERS Safety Report 14413848 (Version 5)
Quarter: 2018Q2

REPORT INFORMATION
  Report Type: Report from Study
  Country: None (occurrence: US)
  Receive Date: 20180119
  Receipt Date: 20180530
  Transmission Date: 20180711
  Serious: Yes (Other)
  Sender: FDA-Public Use
  Company Number: US-ABBVIE-18K-163-2225578-00

PATIENT
  Age: 59 Year
  Sex: Male
  Weight: 114.86 kg

DRUGS (7)
  1. THYROXINE [Concomitant]
     Active Substance: LEVOTHYROXINE
     Indication: HYPOTHYROIDISM
  2. FOLIC ACID. [Concomitant]
     Active Substance: FOLIC ACID
     Indication: PRODUCT USED FOR UNKNOWN INDICATION
  3. HUMIRA [Suspect]
     Active Substance: ADALIMUMAB
     Route: 058
     Dates: start: 201801
  4. IRON [Concomitant]
     Active Substance: IRON
     Indication: MINERAL SUPPLEMENTATION
  5. METHOTREXATE. [Concomitant]
     Active Substance: METHOTREXATE
     Indication: RHEUMATOID ARTHRITIS
  6. HUMIRA [Suspect]
     Active Substance: ADALIMUMAB
     Indication: RHEUMATOID ARTHRITIS
     Route: 058
     Dates: start: 2014, end: 201712
  7. PRAVASTATIN. [Concomitant]
     Active Substance: PRAVASTATIN
     Indication: BLOOD CHOLESTEROL INCREASED

REACTIONS (18)
  - Dyspnoea exertional [Unknown]
  - Rheumatoid lung [Recovered/Resolved]
  - Sensitivity to weather change [Unknown]
  - Dyspnoea [Unknown]
  - Viral infection [Recovered/Resolved]
  - Dyspnoea [Recovered/Resolved]
  - Hypersensitivity [Unknown]
  - Secretion discharge [Recovered/Resolved]
  - Respiratory tract congestion [Recovered/Resolved]
  - Rheumatoid arthritis [Unknown]
  - Chronic obstructive pulmonary disease [Unknown]
  - Rash [Unknown]
  - Viral infection [Recovering/Resolving]
  - Rheumatoid lung [Recovering/Resolving]
  - Sensitivity to weather change [Unknown]
  - Pulmonary oedema [Recovering/Resolving]
  - Dyspnoea [Recovered/Resolved]
  - Pulmonary oedema [Recovered/Resolved]

NARRATIVE: CASE EVENT DATE: 2016
